FAERS Safety Report 10362481 (Version 2)
Quarter: 2015Q4

REPORT INFORMATION
  Report Type: Spontaneous
  Country: DK (occurrence: DK)
  Receive Date: 20140805
  Receipt Date: 20151201
  Transmission Date: 20160304
  Serious: Yes (Hospitalization)
  Sender: FDA-Public Use
  Company Number: PHHY2014DK093220

PATIENT
  Age: 73 Year
  Sex: Male

DRUGS (2)
  1. TEGRETOL [Suspect]
     Active Substance: CARBAMAZEPINE
     Indication: EPILEPSY
     Dosage: 200 MG, TID
     Route: 065
     Dates: end: 20130905
  2. TEGRETOL [Suspect]
     Active Substance: CARBAMAZEPINE
     Dosage: 200 MG, TID
     Route: 065
     Dates: start: 20130905, end: 20130905

REACTIONS (9)
  - Loss of consciousness [Unknown]
  - Confusional state [Unknown]
  - Diplopia [Unknown]
  - Hyponatraemia [Unknown]
  - Cerebellar infarction [Recovered/Resolved with Sequelae]
  - Balance disorder [Unknown]
  - Headache [Unknown]
  - Gait disturbance [Unknown]
  - Dizziness [Unknown]

NARRATIVE: CASE EVENT DATE: 2006
